FAERS Safety Report 9371075 (Version 6)
Quarter: 2014Q1

REPORT INFORMATION
  Report Type: Report from Study
  Country: JP (occurrence: JP)
  Receive Date: 20130627
  Receipt Date: 20140109
  Transmission Date: 20141002
  Serious: Yes (Other)
  Sender: FDA-Public Use
  Company Number: JP-B.I. PHARMACEUTICALS,INC./RIDGEFIELD-2013-BI-11627NB

PATIENT
  Age: 84 Year
  Sex: Female
  Weight: 52 kg

DRUGS (8)
  1. PRAZAXA [Suspect]
     Indication: CEREBROVASCULAR ACCIDENT PROPHYLAXIS
     Dosage: 185 MG
     Route: 048
     Dates: start: 20120911, end: 20120927
  2. PRAZAXA [Suspect]
     Dosage: 110 MG
     Route: 048
     Dates: start: 20120928
  3. ANCARON [Concomitant]
     Indication: CARDIOVERSION
     Dosage: 200 MG
     Route: 048
     Dates: start: 20120923, end: 20120926
  4. CHIYOBAN [Concomitant]
     Indication: CARDIOVERSION
     Dosage: 300 MG
     Route: 048
     Dates: start: 20120927, end: 20120928
  5. PIMOBENDAN [Concomitant]
     Dosage: 2.5 MG
     Route: 048
     Dates: start: 20120926
  6. SUNRYTHM [Concomitant]
     Indication: CARDIOVERSION
     Dosage: 450 MG
     Route: 048
     Dates: start: 20120904, end: 20120922
  7. DIGOXIN [Concomitant]
     Indication: CARDIOVERSION
     Dosage: 0.125 MG
     Route: 048
     Dates: start: 20120911, end: 20120922
  8. DIART [Concomitant]
     Dosage: 30 MG
     Route: 048
     Dates: start: 20120921, end: 20120925

REACTIONS (3)
  - Cardiac failure [Recovered/Resolved]
  - Dermatitis [Recovered/Resolved]
  - Renal impairment [Recovered/Resolved]
